FAERS Safety Report 5537240-4 (Version None)
Quarter: 2007Q4

REPORT INFORMATION
  Report Type: 
  Country: None (occurrence: None)
  Receive Date: 20071207
  Receipt Date: 20071129
  Transmission Date: 20080405
  Serious: Yes (Hospitalization)
  Sender: FDA-Public Use
  Company Number: DEWYE063220JUL07

PATIENT
  Sex: Male
  Weight: 59 kg

DRUGS (8)
  1. TREVILOR [Suspect]
     Route: 048
     Dates: start: 20070701
  2. BERLINSULIN L [Concomitant]
     Dosage: UNKNOWN
  3. FOSAMAX [Concomitant]
  4. HEPA-MERZ [Concomitant]
  5. ACETYLSALICYLIC ACID SRT [Concomitant]
  6. LOCOL [Concomitant]
  7. NITROGLYCERIN [Concomitant]
     Dosage: UNKNOWN
  8. NOVONORM [Concomitant]

REACTIONS (12)
  - ANGINA PECTORIS [None]
  - BLOOD CREATINE PHOSPHOKINASE INCREASED [None]
  - BLOOD PRESSURE INCREASED [None]
  - ELECTROCARDIOGRAM ST SEGMENT DEPRESSION [None]
  - HEPATIC STEATOSIS [None]
  - HEPATITIS A [None]
  - HEPATITIS B [None]
  - HYPOAESTHESIA [None]
  - MITRAL VALVE INCOMPETENCE [None]
  - TACHYCARDIA [None]
  - TRICUSPID VALVE INCOMPETENCE [None]
  - VARICOPHLEBITIS [None]
